FAERS Safety Report 17080812 (Version 1)
Quarter: 2019Q4

REPORT INFORMATION
  Report Type: Spontaneous
  Country: US (occurrence: US)
  Receive Date: 20191127
  Receipt Date: 20191127
  Transmission Date: 20200122
  Serious: No
  Sender: FDA-Public Use
  Company Number: US-MYLANLABS-2019M1109599

PATIENT
  Sex: Male
  Weight: 57 kg

DRUGS (1)
  1. SCOPOLAMINE TRANSDERMAL SYSTEM [Suspect]
     Active Substance: SCOPOLAMINE
     Indication: CEREBRAL PALSY
     Dosage: 1 DOSAGE FORM, Q3D (BEHIND EAR)
     Route: 062

REACTIONS (4)
  - Off label use [Not Recovered/Not Resolved]
  - Therapeutic response unexpected [Not Recovered/Not Resolved]
  - Product adhesion issue [Unknown]
  - No adverse event [Unknown]
